FAERS Safety Report 7094520-1 (Version None)
Quarter: 2010Q4

REPORT INFORMATION
  Report Type: 
  Country: None (occurrence: None)
  Receive Date: 20101110
  Receipt Date: 20101105
  Transmission Date: 20110411
  Serious: Yes (Death)
  Sender: FDA-Public Use
  Company Number: PHHY2010JP75018

PATIENT
  Age: 44 Year
  Sex: Female

DRUGS (4)
  1. PARLODEL [Suspect]
     Route: 048
  2. DANTRIUM [Suspect]
  3. PROPOFOL [Suspect]
     Route: 042
  4. AMOXAPINE [Suspect]
     Route: 048

REACTIONS (4)
  - ACUTE HEPATIC FAILURE [None]
  - BRAIN OEDEMA [None]
  - DISSEMINATED INTRAVASCULAR COAGULATION [None]
  - RENAL FAILURE ACUTE [None]
